FAERS Safety Report 25674353 (Version 1)
Quarter: 2025Q3

REPORT INFORMATION
  Report Type: Spontaneous
  Country: EU (occurrence: EU)
  Receive Date: 20250813
  Receipt Date: 20250813
  Transmission Date: 20251021
  Serious: Yes (Hospitalization)
  Sender: SANOFI AVENTIS
  Company Number: None

PATIENT
  Age: 70 Year
  Sex: Female

DRUGS (3)
  1. RIFAMPIN [Suspect]
     Active Substance: RIFAMPIN
     Indication: Endocarditis staphylococcal
     Route: 042
     Dates: start: 20250505, end: 20250515
  2. RIFAMPIN [Suspect]
     Active Substance: RIFAMPIN
     Route: 042
     Dates: start: 20250521, end: 20250608
  3. CEFTAROLINE FOSAMIL [Suspect]
     Active Substance: CEFTAROLINE FOSAMIL
     Indication: Endocarditis staphylococcal
     Route: 042
     Dates: start: 20250430, end: 20250615

REACTIONS (1)
  - Rash maculo-papular [Recovered/Resolved]

NARRATIVE: CASE EVENT DATE: 20250605
